FAERS Safety Report 13340602 (Version 1)
Quarter: 2017Q1

REPORT INFORMATION
  Report Type: Spontaneous
  Country: US (occurrence: US)
  Receive Date: 20170316
  Receipt Date: 20170316
  Transmission Date: 20170428
  Serious: Yes (Other)
  Sender: FDA-Public Use
  Company Number: US-TEVA-748536ACC

PATIENT
  Sex: Female

DRUGS (1)
  1. PARAGARD T 380A [Suspect]
     Active Substance: COPPER
     Dates: start: 20131231, end: 20170303

REACTIONS (4)
  - Device breakage [Not Recovered/Not Resolved]
  - Pregnancy on contraceptive [Unknown]
  - Exposure during pregnancy [Unknown]
  - Embedded device [Not Recovered/Not Resolved]
